FAERS Safety Report 4310239-1 (Version None)
Quarter: 2004Q1

REPORT INFORMATION
  Report Type: 
  Country: None (occurrence: None)
  Receive Date: 20040301
  Receipt Date: 20031219
  Transmission Date: 20041129
  Serious: No
  Sender: FDA-Public Use
  Company Number: WAES 0312USA02223

PATIENT
  Sex: Male

DRUGS (2)
  1. ZETIA [Suspect]
     Dosage: PO
  2. STATIN [Concomitant]

REACTIONS (3)
  - ASTHENIA [None]
  - LETHARGY [None]
  - MYALGIA [None]
